FAERS Safety Report 5722731-3 (Version None)
Quarter: 2008Q2

REPORT INFORMATION
  Report Type: 
  Country: None (occurrence: None)
  Receive Date: 20080429
  Receipt Date: 20070914
  Transmission Date: 20081010
  Serious: No
  Sender: FDA-Public Use
  Company Number: US-ASTRAZENECA-2007UW21793

PATIENT
  Age: 58 Year
  Sex: Male
  Weight: 81.6 kg

DRUGS (11)
  1. NEXIUM [Suspect]
     Indication: GASTROOESOPHAGEAL REFLUX DISEASE
     Route: 048
     Dates: start: 20070907
  2. TOPROL-XL [Concomitant]
  3. ZOCOR [Concomitant]
  4. LISINOPRIL [Concomitant]
  5. METHYLTREXATE [Concomitant]
  6. PREDNISONE [Concomitant]
  7. HYDROCORDONE [Concomitant]
  8. TRIAMTIRINE [Concomitant]
  9. HYDROCHLOROTHIAZIDE [Concomitant]
  10. CENTRUM SILVER [Concomitant]
  11. ASPIRIN [Concomitant]

REACTIONS (9)
  - ABDOMINAL PAIN UPPER [None]
  - DIARRHOEA [None]
  - EYE IRRITATION [None]
  - FATIGUE [None]
  - FEELING ABNORMAL [None]
  - HEADACHE [None]
  - INSOMNIA [None]
  - NAUSEA [None]
  - VISION BLURRED [None]
